FAERS Safety Report 26001052 (Version 2)
Quarter: 2025Q4

REPORT INFORMATION
  Report Type: Spontaneous
  Country: CN (occurrence: CN)
  Receive Date: 20251105
  Receipt Date: 20251120
  Transmission Date: 20260117
  Serious: Yes (Life-Threatening, Hospitalization)
  Sender: BAUSCH AND LOMB
  Company Number: CN-MLMSERVICE-20251020-PI683611-00117-1

PATIENT
  Age: 57 Year
  Sex: Male

DRUGS (4)
  1. DEXAMETHASONE [Suspect]
     Active Substance: DEXAMETHASONE
     Indication: Plasma cell myeloma
     Dosage: DEXAMETHASONE, 27 TABLETS (0.75MG PER TABLET), FOR ORAL USE, ONCE A WEEK; MAINTENANCE TREATMENT (BOR
     Route: 048
     Dates: start: 202207, end: 20230322
  2. BORTEZOMIB [Suspect]
     Active Substance: BORTEZOMIB
     Indication: Plasma cell myeloma
     Dosage: FOR ONE YEAR
     Route: 065
     Dates: start: 2022
  3. BORTEZOMIB [Suspect]
     Active Substance: BORTEZOMIB
     Dosage: FOR 8 MONTHS
     Route: 065
  4. LENALIDOMIDE [Suspect]
     Active Substance: LENALIDOMIDE
     Indication: Plasma cell myeloma
     Dosage: FOR ONE YEAR
     Route: 065
     Dates: start: 2022

REACTIONS (6)
  - Thrombocytopenia [Recovered/Resolved]
  - Hepatitis G [Recovered/Resolved]
  - Listeria sepsis [Recovered/Resolved]
  - Meningitis listeria [Recovered/Resolved]
  - Viraemia [Recovered/Resolved]
  - COVID-19 [Recovered/Resolved]
